FAERS Safety Report 5758126-6 (Version None)
Quarter: 2008Q2

REPORT INFORMATION
  Report Type: 
  Country: None (occurrence: None)
  Receive Date: 20080603
  Receipt Date: 20080603
  Transmission Date: 20081010
  Serious: Yes (Life-Threatening)
  Sender: FDA-Public Use
  Company Number: None

PATIENT
  Sex: Female

DRUGS (2)
  1. COREG [Suspect]
     Indication: DIABETES MELLITUS
     Dosage: COREG CR DAILY PO
     Route: 048
  2. GLIMEPIRIDE [Suspect]
     Dosage: GLIMEPIRIDE DAILY PO
     Route: 048

REACTIONS (7)
  - BLOOD GLUCOSE DECREASED [None]
  - BLOOD PRESSURE DECREASED [None]
  - COLD SWEAT [None]
  - FACIAL PALSY [None]
  - MONOPARESIS [None]
  - MUSCULAR WEAKNESS [None]
  - UNEVALUABLE EVENT [None]
